FAERS Safety Report 5715570-0 (Version None)
Quarter: 2008Q2

REPORT INFORMATION
  Report Type: 
  Country: None (occurrence: None)
  Receive Date: 20080415
  Receipt Date: 20080401
  Transmission Date: 20081010
  Serious: Yes (Hospitalization)
  Sender: FDA-Public Use
  Company Number: THYM-1000659

PATIENT
  Age: 52 Year
  Sex: Male
  Weight: 119 kg

DRUGS (9)
  1. THYMOGLOBULIN [Suspect]
     Indication: APLASTIC ANAEMIA
     Dosage: 280 MG,
     Dates: start: 20080318, end: 20080322
  2. THYMOGLOBULIN [Suspect]
  3. AMINOCAPROIC ACID [Concomitant]
  4. NEUPOGEN [Concomitant]
  5. ACYCLOVIR [Concomitant]
  6. NEORAL [Concomitant]
  7. PENTAMIDINE (PENTAMIDINE) [Concomitant]
  8. PREDNISOLONE ACETATE [Concomitant]
  9. LEVAQUIN [Concomitant]

REACTIONS (4)
  - BLOOD PRESSURE INCREASED [None]
  - FEBRILE NEUTROPENIA [None]
  - SERUM SICKNESS [None]
  - SYNCOPE VASOVAGAL [None]
